FAERS Safety Report 10066911 (Version 1)
Quarter: 2014Q2

REPORT INFORMATION
  Report Type: Report from Study
  Country: US (occurrence: US)
  Receive Date: 20140409
  Receipt Date: 20140409
  Transmission Date: 20141212
  Serious: Yes (Hospitalization)
  Sender: FDA-Public Use
  Company Number: US-ROCHE-1375187

PATIENT
  Age: 78 Year
  Sex: Female

DRUGS (1)
  1. PULMOZYME [Suspect]
     Indication: BRONCHIAL SECRETION RETENTION
     Route: 065
     Dates: start: 201306

REACTIONS (1)
  - Pneumonia [Recovered/Resolved]
